FAERS Safety Report 9678663 (Version 1)
Quarter: 2013Q4

REPORT INFORMATION
  Report Type: Spontaneous
  Country: US (occurrence: US)
  Receive Date: 20131108
  Receipt Date: 20131108
  Transmission Date: 20140711
  Serious: Yes (Other)
  Sender: FDA-Public Use
  Company Number: ALCN2013US005578

PATIENT
  Sex: Male

DRUGS (2)
  1. SIMBRINZA [Suspect]
     Dosage: UNK, BID
     Route: 047
     Dates: start: 20130702, end: 20130813
  2. TRAVATAN Z [Concomitant]
     Dosage: 1 GTT, QHS
     Route: 047
     Dates: start: 20130108

REACTIONS (4)
  - Hypotension [Recovered/Resolved]
  - Blood pressure systolic decreased [Recovered/Resolved]
  - Blood pressure fluctuation [Recovered/Resolved]
  - Fatigue [Unknown]
